FAERS Safety Report 4443111-7 (Version None)
Quarter: 2004Q3

REPORT INFORMATION
  Report Type: 
  Country: None (occurrence: None)
  Receive Date: 20040907
  Receipt Date: 20040823
  Transmission Date: 20050211
  Serious: Yes (Other)
  Sender: FDA-Public Use
  Company Number: 04-00521

PATIENT
  Age: 34 Year
  Sex: Male

DRUGS (2)
  1. OXYMETAZOLINE HYDROCHLORIDE SOLUTION/DROPS [Suspect]
     Indication: SINUS CONGESTION
     Dosage: 3 TO 4 TIMES A DAY, NASAL SPRAY
     Route: 045
  2. FEXOFENADINE HYDROCHLORIDE [Concomitant]

REACTIONS (1)
  - CHORIORETINOPATHY [None]
